FAERS Safety Report 7655129-1 (Version None)
Quarter: 2011Q3

REPORT INFORMATION
  Report Type: 
  Country: None (occurrence: None)
  Receive Date: 20110729
  Receipt Date: 20110718
  Transmission Date: 20111222
  Serious: Yes (Death)
  Sender: FDA-Public Use
  Company Number: 2009AL002789

PATIENT
  Age: 86 Year
  Sex: Female

DRUGS (11)
  1. DIGOXIN [Suspect]
     Dosage: 0325 MG
     Dates: start: 20070814
  2. PROCARDIA [Concomitant]
  3. LASIX [Concomitant]
  4. NITROGLYCERIN [Concomitant]
  5. TOPROL-XL [Concomitant]
  6. CARDIZEM [Concomitant]
  7. DIGOXIN [Suspect]
     Indication: SUPRAVENTRICULAR EXTRASYSTOLES
     Dosage: 0.25 MG;QD;PO
     Route: 048
     Dates: start: 19950601
  8. COUMADIN [Concomitant]
  9. METOPROLOL TARTRATE [Concomitant]
  10. RESTORIL [Concomitant]
  11. DILTIAZEM HYDROCHLORIDE [Concomitant]

REACTIONS (13)
  - DECREASED APPETITE [None]
  - PLEURAL EFFUSION [None]
  - AORTIC VALVE SCLEROSIS [None]
  - FATIGUE [None]
  - MITRAL VALVE CALCIFICATION [None]
  - TRICUSPID VALVE INCOMPETENCE [None]
  - DIZZINESS [None]
  - MITRAL VALVE INCOMPETENCE [None]
  - ATRIAL FIBRILLATION [None]
  - PALPITATIONS [None]
  - ASTHENIA [None]
  - PULMONARY OEDEMA [None]
  - VENTRICULAR HYPOKINESIA [None]
